FAERS Safety Report 10215835 (Version 2)
Quarter: 2014Q2

REPORT INFORMATION
  Report Type: Report from Study
  Country: ZA (occurrence: ZA)
  Receive Date: 20140604
  Receipt Date: 20140609
  Transmission Date: 20141212
  Serious: Yes (Hospitalization)
  Sender: FDA-Public Use
  Company Number: PHHY2014ZA067740

PATIENT
  Age: 76 Year
  Sex: Female

DRUGS (10)
  1. ACLASTA [Suspect]
     Indication: OSTEOPOROSIS
     Dosage: 5 MG/100 ML
     Route: 042
     Dates: start: 201306
  2. CARBIDOPA LEVODOPA TEVA [Concomitant]
     Indication: PARKINSONISM
     Dosage: 100 MG, UNK
  3. PEXOLA [Concomitant]
     Indication: PARKINSONISM
     Dosage: 1 MG, UNK
  4. AZILECT [Concomitant]
     Indication: PARKINSONISM
     Dosage: UNK
  5. SYMADIN [Concomitant]
     Indication: PARKINSONISM
     Dosage: UNK
  6. SYMMETREL [Concomitant]
     Indication: PARKINSONISM
     Dosage: UNK
  7. KEYSAL [Concomitant]
     Indication: ANGINA PECTORIS
     Dosage: 5 MG, UNK
  8. KEYSAL [Concomitant]
     Indication: HYPERTENSION
  9. TOPZOL//PANTOPRAZOLE SODIUM SESQUIHYDRATE [Concomitant]
     Indication: DUODENAL ULCER
     Dosage: 1 DF, PER DAY
  10. TOPZOL//PANTOPRAZOLE SODIUM SESQUIHYDRATE [Concomitant]
     Indication: GASTROOESOPHAGEAL REFLUX DISEASE

REACTIONS (3)
  - Pneumonia [Recovering/Resolving]
  - Malaise [Recovering/Resolving]
  - Asthenia [Recovering/Resolving]
